FAERS Safety Report 5475156-2 (Version None)
Quarter: 2007Q4

REPORT INFORMATION
  Report Type: 
  Country: None (occurrence: None)
  Receive Date: 20071002
  Receipt Date: 20070920
  Transmission Date: 20080405
  Serious: Yes (Disabling, Other)
  Sender: FDA-Public Use
  Company Number: JP-PFIZER INC-2007070291

PATIENT
  Sex: Female
  Weight: 56.3 kg

DRUGS (5)
  1. SULPERAZON [Suspect]
     Route: 042
     Dates: start: 20061127, end: 20061211
  2. POLYMYXIN B SULFATE [Suspect]
     Route: 048
     Dates: start: 20061201, end: 20061205
  3. VFEND [Suspect]
     Dates: start: 20060727, end: 20060801
  4. ZYVOX [Concomitant]
  5. DIFLUCAN [Concomitant]

REACTIONS (1)
  - LEUKOENCEPHALOPATHY [None]
